FAERS Safety Report 6030158-2 (Version None)
Quarter: 2008Q4

REPORT INFORMATION
  Report Type: 
  Country: None (occurrence: None)
  Receive Date: 20081222
  Receipt Date: 20081008
  Transmission Date: 20090506
  Serious: Yes (Other)
  Sender: FDA-Public Use
  Company Number: US-WYE-H06314808

PATIENT
  Age: 72 Year
  Sex: Male
  Weight: 88.98 kg

DRUGS (6)
  1. PRISTIQ [Suspect]
     Indication: DEPRESSION
     Dosage: UNSPECIFIED, ORAL
     Route: 048
     Dates: start: 20081002, end: 20081005
  2. LIPITOR [Concomitant]
  3. ASACOL [Concomitant]
  4. GABAPENTIN [Concomitant]
  5. FLOMAX [Concomitant]
  6. NORVASC [Concomitant]

REACTIONS (2)
  - NAUSEA [None]
  - VOMITING [None]
